FAERS Safety Report 8960829 (Version 1)
Quarter: 2012Q4

REPORT INFORMATION
  Report Type: 
  Country: BR (occurrence: BR)
  Receive Date: 20121212
  Receipt Date: 20121212
  Transmission Date: 20130627
  Serious: Yes (Other)
  Sender: FDA-Public Use
  Company Number: BR-PFIZER INC-2012312849

PATIENT
  Sex: Male

DRUGS (2)
  1. CHAMPIX [Suspect]
     Dosage: UNK
  2. CHAMPIX [Suspect]
     Dosage: 1 mg, UNK

REACTIONS (2)
  - Cardiac disorder [Unknown]
  - Dysphonia [Unknown]
